FAERS Safety Report 13444230 (Version 1)
Quarter: 2017Q2

REPORT INFORMATION
  Report Type: Spontaneous
  Country: US (occurrence: US)
  Receive Date: 20170414
  Receipt Date: 20170414
  Transmission Date: 20170830
  Serious: Yes (Other)
  Sender: FDA-Public Use
  Company Number: US-PFIZER INC-2017156759

PATIENT
  Sex: Female

DRUGS (1)
  1. XELJANZ [Suspect]
     Active Substance: TOFACITINIB CITRATE
     Indication: RHEUMATOID ARTHRITIS
     Dosage: 5 MG, UNK

REACTIONS (21)
  - Night sweats [Unknown]
  - Muscular weakness [Unknown]
  - Musculoskeletal stiffness [Unknown]
  - Blindness [Unknown]
  - Arthralgia [Unknown]
  - Joint swelling [Unknown]
  - Dry mouth [Unknown]
  - Paraesthesia [Unknown]
  - Streptococcal infection [Unknown]
  - Alopecia [Unknown]
  - Diarrhoea [Unknown]
  - Rash [Unknown]
  - Papule [Unknown]
  - Headache [Unknown]
  - Sleep disorder [Unknown]
  - Depression [Unknown]
  - Hypoaesthesia [Unknown]
  - Grip strength decreased [Unknown]
  - Fatigue [Unknown]
  - Peripheral swelling [Unknown]
  - Nail disorder [Unknown]
